FAERS Safety Report 18269815 (Version 3)
Quarter: 2020Q4

REPORT INFORMATION
  Report Type: Report from Study
  Country: EG (occurrence: EG)
  Receive Date: 20200915
  Receipt Date: 20201210
  Transmission Date: 20210113
  Serious: Yes (Other)
  Sender: FDA-Public Use
  Company Number: EG-BAYER-2020-190222

PATIENT
  Age: 17 Year
  Sex: Male

DRUGS (3)
  1. BETAFERON [Suspect]
     Active Substance: INTERFERON BETA-1B
     Indication: MULTIPLE SCLEROSIS
     Dosage: UNK
     Dates: start: 202009
  2. BETAFERON [Suspect]
     Active Substance: INTERFERON BETA-1B
     Indication: MULTIPLE SCLEROSIS
     Dosage: 1 ML, TIW (1 ML, 3 DAYS/WEEK (SUNDAY, TUESDAY AND THURSDAY)
     Dates: start: 20200830
  3. CAL MAG [CALCIUM CARBONATE;MAGNESIUM] [Concomitant]
     Indication: HYPOCALCAEMIA
     Dosage: 1 DF, QD (1 ML, 3 DAYS/WEEK (SUNDAY, TUESDAY AND THURSDAY)
     Dates: start: 20200830

REACTIONS (9)
  - Transient aphasia [Recovered/Resolved]
  - Pyrexia [Recovering/Resolving]
  - Injection site pain [Not Recovered/Not Resolved]
  - Calcium deficiency [Not Recovered/Not Resolved]
  - Injection site swelling [Recovered/Resolved]
  - Seizure [Recovered/Resolved]
  - Head discomfort [Not Recovered/Not Resolved]
  - Dyskinesia [Not Recovered/Not Resolved]
  - Hypersomnia [Not Recovered/Not Resolved]

NARRATIVE: CASE EVENT DATE: 20200830
